FAERS Safety Report 24624064 (Version 1)
Quarter: 2024Q4

REPORT INFORMATION
  Report Type: Spontaneous
  Country: US (occurrence: None)
  Receive Date: 20241115
  Receipt Date: 20241115
  Transmission Date: 20250115
  Serious: Yes (Hospitalization)
  Sender: Public
  Company Number: None

PATIENT
  Age: 82 Year
  Sex: Male
  Weight: 55 kg

DRUGS (1)
  1. NAPROXEN SODIUM [Suspect]
     Active Substance: NAPROXEN SODIUM
     Indication: Pain
     Dosage: 220.00 MG OTHER ORAL?
     Route: 048
     Dates: start: 20230101

REACTIONS (3)
  - Gastrointestinal haemorrhage [None]
  - Blood loss anaemia [None]
  - Duodenal ulcer [None]

NARRATIVE: CASE EVENT DATE: 20240528
